FAERS Safety Report 8594269 (Version 5)
Quarter: 2014Q1

REPORT INFORMATION
  Report Type: Spontaneous
  Country: US (occurrence: US)
  Receive Date: 20120604
  Receipt Date: 20140331
  Transmission Date: 20141002
  Serious: Yes (Hospitalization, Congenital Anomaly, Other)
  Sender: FDA-Public Use
  Company Number: US-PFIZER INC-2012128814

PATIENT
  Sex: Male
  Weight: 2.94 kg

DRUGS (20)
  1. ZOLOFT [Suspect]
     Indication: DEPRESSION
     Dosage: STARTER KIT, UNK
     Route: 064
     Dates: start: 20021016
  2. ZOLOFT [Suspect]
     Dosage: 50 MG, 1X/DAY
     Route: 064
     Dates: start: 20021113
  3. ZOLOFT [Suspect]
     Dosage: 100 MG, 1X/DAY
     Route: 064
     Dates: start: 2002
  4. ALDOMET [Concomitant]
     Indication: HYPERTENSION
     Dosage: 250 MG, 2X/DAY
     Route: 064
  5. PRENATAL VITAMINS [Concomitant]
     Dosage: UNK
     Route: 064
  6. METOCLOPRAMIDE [Concomitant]
     Dosage: 10 MG, 4X/DAY, ONE TABLET BEFORE EACH MEAL AND AT BEDTIME
     Route: 064
     Dates: start: 20080718
  7. ANALPRAM-HC [Concomitant]
     Dosage: 2.5% CREAM UNKNOWN DOSE TWICE DAILY
     Route: 064
     Dates: start: 20081027
  8. ANALPRAM-HC [Concomitant]
     Dosage: UNK
     Route: 064
     Dates: start: 20081029
  9. METHYLDOPA [Concomitant]
     Dosage: 250 MG, 2X/DAY
     Route: 064
     Dates: start: 20080718
  10. ANUCORT-HC [Concomitant]
     Dosage: 25 MG, 1X/DAY
     Route: 064
     Dates: start: 20081129
  11. PROMETHAZINE [Concomitant]
     Dosage: 25MG, ONE TABLET ORALLY EVERY 4-6 HOURS AS NEEDED
     Route: 064
     Dates: start: 20080610
  12. PRENATAL VITAMINS [Concomitant]
     Dosage: 1 DF, 1X/DAY
     Route: 064
     Dates: start: 20090106
  13. OB NATAL [Concomitant]
     Dosage: 1 DF, 1X/DAY
     Route: 064
     Dates: start: 20081215
  14. PHENERGAN [Concomitant]
     Indication: NAUSEA
     Dosage: 25 MG, EVERY FOUR TO SIX HOURS AS NEEDED
     Route: 064
  15. REGLAN [Concomitant]
     Dosage: 10 MG, 1X/DAY
     Route: 064
  16. MULTIPLE VITAMINS [Concomitant]
     Dosage: UNK
     Route: 064
     Dates: start: 20081106
  17. SENOKOT [Concomitant]
     Dosage: UNK, TWO TABLETS
     Route: 064
     Dates: start: 20081106
  18. MILK OF MAGNESIA [Concomitant]
     Indication: CONSTIPATION
     Dosage: 30 ML, AS NEEDED
     Route: 064
     Dates: start: 20081106
  19. ORAJEL [Concomitant]
     Dosage: UNK, AS NEEDED
     Route: 064
     Dates: start: 20081106
  20. TUCKS [Concomitant]
     Dosage: UNK
     Route: 064
     Dates: start: 20081106

REACTIONS (9)
  - Maternal exposure during pregnancy [Unknown]
  - Transposition of the great vessels [Unknown]
  - Ventricular septal defect [Unknown]
  - Pulmonary valve stenosis congenital [Unknown]
  - Diaphragmatic paralysis [Unknown]
  - Patent ductus arteriosus [Unknown]
  - Cardiomegaly [Unknown]
  - Atrial septal defect [Unknown]
  - Right ventricular hypertrophy [Unknown]
